FAERS Safety Report 16412138 (Version 1)
Quarter: 2019Q2

REPORT INFORMATION
  Report Type: Spontaneous
  Country: US (occurrence: US)
  Receive Date: 20190610
  Receipt Date: 20190610
  Transmission Date: 20190711
  Serious: Yes (Death, Hospitalization)
  Sender: FDA-Public Use
  Company Number: US-009507513-1906USA003356

PATIENT
  Age: 72 Year
  Sex: Male

DRUGS (2)
  1. ABRAXANE [Concomitant]
     Active Substance: PACLITAXEL
  2. KEYTRUDA [Suspect]
     Active Substance: PEMBROLIZUMAB
     Indication: LUNG NEOPLASM MALIGNANT
     Dosage: UNK
     Route: 042
     Dates: start: 20181219, end: 20190403

REACTIONS (2)
  - Oncologic complication [Fatal]
  - Dizziness [Unknown]

NARRATIVE: CASE EVENT DATE: 20190412
